FAERS Safety Report 16682248 (Version 1)
Quarter: 2019Q3

REPORT INFORMATION
  Report Type: Spontaneous
  Country: US (occurrence: US)
  Receive Date: 20190808
  Receipt Date: 20190808
  Transmission Date: 20191004
  Serious: No
  Sender: FDA-Public Use
  Company Number: US-GLAXOSMITHKLINE-US2019140271

PATIENT
  Age: 45 Year
  Sex: Male

DRUGS (3)
  1. NICODERM CQ [Suspect]
     Active Substance: NICOTINE
     Dosage: 1 PATCH DAILY
     Route: 062
     Dates: start: 20190727
  2. NICODERM CQ [Suspect]
     Active Substance: NICOTINE
     Dosage: 1 PATCH DAILY
     Route: 062
     Dates: start: 20190727
  3. NICODERM CQ [Suspect]
     Active Substance: NICOTINE
     Indication: SMOKING CESSATION THERAPY
     Dosage: 1 PATCH, DAILY
     Route: 062
     Dates: start: 2006

REACTIONS (2)
  - Nicotine dependence [Unknown]
  - Pruritus [Recovered/Resolved]
